FAERS Safety Report 7135778-X (Version None)
Quarter: 2010Q4

REPORT INFORMATION
  Report Type: 
  Country: None (occurrence: None)
  Receive Date: 20101203
  Receipt Date: 20101129
  Transmission Date: 20110411
  Serious: Yes (Hospitalization)
  Sender: FDA-Public Use
  Company Number: US-AMGEN-USASP2010006623

PATIENT

DRUGS (1)
  1. ENBREL [Suspect]
     Indication: PSORIATIC ARTHROPATHY
     Dates: start: 20041101, end: 20101021

REACTIONS (5)
  - MESENTERIC VEIN THROMBOSIS [None]
  - NAUSEA [None]
  - PANCREATITIS [None]
  - STREPTOCOCCAL SEPSIS [None]
  - WEIGHT DECREASED [None]
